FAERS Safety Report 9943701 (Version 2)
Quarter: 2014Q1

REPORT INFORMATION
  Report Type: Report from Study
  Country: US (occurrence: US)
  Receive Date: 20140303
  Receipt Date: 20140303
  Transmission Date: 20141002
  Serious: Yes (Other)
  Sender: FDA-Public Use
  Company Number: US-ABBVIE-12P-163-1022406-00

PATIENT
  Age: 54 Year
  Sex: Male

DRUGS (4)
  1. HUMIRA [Suspect]
     Indication: PSORIASIS
     Dates: start: 2004, end: 20121218
  2. LIPITOR [Concomitant]
     Indication: LIPIDS INCREASED
     Dosage: DAILY
  3. TRIAMTEREN-HCTZ [Concomitant]
     Indication: HYPERTENSION
     Dosage: DAILY
  4. TRIAMTEREN-HCTZ [Concomitant]
     Indication: DIURETIC THERAPY

REACTIONS (1)
  - Prostate cancer [Not Recovered/Not Resolved]
